FAERS Safety Report 4330302-9 (Version None)
Quarter: 2004Q1

REPORT INFORMATION
  Report Type: 
  Country: None (occurrence: None)
  Receive Date: 20040329
  Receipt Date: 20040316
  Transmission Date: 20041129
  Serious: Yes (Hospitalization)
  Sender: FDA-Public Use
  Company Number: 2004017635

PATIENT
  Age: 75 Year
  Sex: Female

DRUGS (8)
  1. GEODON [Suspect]
     Indication: PSYCHOTIC DISORDER
     Dosage: 120 MG (BID), ORAL
     Route: 048
     Dates: start: 20040307
  2. DIURETICS [Concomitant]
  3. LORAZEPAM [Concomitant]
  4. PAROXETINE HCL [Concomitant]
  5. ANTIHYPERTENSIVES [Concomitant]
  6. IRBESARTAN [Concomitant]
  7. VERAPAMIL HCL [Concomitant]
  8. PREDNISOLONE [Concomitant]

REACTIONS (7)
  - COMA [None]
  - DIARRHOEA [None]
  - HYPOKALAEMIA [None]
  - HYPONATRAEMIA [None]
  - POLYDIPSIA [None]
  - POLYURIA [None]
  - VOMITING [None]
